FAERS Safety Report 7177977-7 (Version None)
Quarter: 2010Q4

REPORT INFORMATION
  Report Type: 
  Country: None (occurrence: None)
  Receive Date: 20101220
  Receipt Date: 20101208
  Transmission Date: 20110411
  Serious: Yes (Death, Hospitalization)
  Sender: FDA-Public Use
  Company Number: US-ACTELION-A-US2010-42072

PATIENT

DRUGS (1)
  1. BOSENTAN TABLET UNKNOWN US MG [Suspect]
     Indication: PULMONARY ARTERIAL HYPERTENSION
     Dosage: UNK
     Route: 048
     Dates: start: 20100503, end: 20101118

REACTIONS (6)
  - DEATH [None]
  - HYPOTENSION [None]
  - HYPOXIA [None]
  - OXYGEN SATURATION DECREASED [None]
  - REBOUND EFFECT [None]
  - SYNCOPE [None]
